FAERS Safety Report 4652106-X (Version None)
Quarter: 2005Q2

REPORT INFORMATION
  Report Type: 
  Country: None (occurrence: None)
  Receive Date: 20050502
  Receipt Date: 20050419
  Transmission Date: 20051028
  Serious: Yes (Hospitalization, Other)
  Sender: FDA-Public Use
  Company Number: 2005062589

PATIENT
  Age: 15 Year
  Sex: Female
  Weight: 56.6996 kg

DRUGS (1)
  1. ZITHROMAX [Suspect]
     Indication: IMPETIGO
     Dosage: (EVERY DAY)
     Dates: start: 20050325, end: 20050405

REACTIONS (4)
  - AGGRESSION [None]
  - CIRCULATORY COLLAPSE [None]
  - CONVULSION [None]
  - TREMOR [None]
